FAERS Safety Report 7370420-4 (Version None)
Quarter: 2011Q1

REPORT INFORMATION
  Report Type: 
  Country: None (occurrence: None)
  Receive Date: 20110323
  Receipt Date: 20110318
  Transmission Date: 20110831
  Serious: Yes (Other)
  Sender: FDA-Public Use
  Company Number: US-PFIZER INC-2011031401

PATIENT
  Sex: Male
  Weight: 62.585 kg

DRUGS (13)
  1. IBUPROFEN [Concomitant]
     Indication: OSTEOARTHRITIS
     Dosage: 200 MG, 2X/DAY
  2. VIAGRA [Suspect]
     Indication: ERECTILE DYSFUNCTION
     Dosage: 700 MG, UNK
     Route: 048
  3. VIAGRA [Suspect]
     Dosage: 100 MG, UNK
     Dates: start: 20110208
  4. ZYPREXA [Concomitant]
     Indication: BIPOLAR DISORDER
     Dosage: 10 MG, 1X/DAY
  5. ACETAMINOPHEN [Concomitant]
     Dosage: UNK
     Route: 048
  6. NAPROXEN [Concomitant]
     Indication: ARTHRITIS
  7. EFFEXOR XR [Concomitant]
     Dosage: 5 MG, 1X/DAY
  8. IBUPROFEN [Concomitant]
     Dosage: 300 MG, 2X/DAY
  9. VIAGRA [Suspect]
     Dosage: 100 MG, AS NEEDED
     Route: 048
     Dates: start: 20110301
  10. NAPROXEN [Concomitant]
     Indication: OSTEOARTHRITIS
  11. VITAMIN B [Concomitant]
     Dosage: UNK
  12. VIAGRA [Suspect]
     Dosage: UNK
     Route: 048
     Dates: start: 20110201
  13. NAPROXEN [Concomitant]

REACTIONS (14)
  - MIGRAINE [None]
  - PENIS DISORDER [None]
  - FLUSHING [None]
  - EJACULATION DISORDER [None]
  - DRUG INEFFECTIVE [None]
  - PAIN [None]
  - PENILE SWELLING [None]
  - INCORRECT DOSE ADMINISTERED [None]
  - PENILE DISCHARGE [None]
  - ABDOMINAL DISCOMFORT [None]
  - ERECTION INCREASED [None]
  - ABDOMINAL PAIN UPPER [None]
  - SKIN DISCOLOURATION [None]
  - DYSURIA [None]
